FAERS Safety Report 7690245-X (Version None)
Quarter: 2011Q3

REPORT INFORMATION
  Report Type: 
  Country: None (occurrence: None)
  Receive Date: 20110818
  Receipt Date: 20110816
  Transmission Date: 20111222
  Serious: No
  Sender: FDA-Public Use
  Company Number: US-PFIZER INC-2011141309

PATIENT
  Sex: Female

DRUGS (5)
  1. VICODIN [Concomitant]
     Indication: PAIN
     Dosage: 5/500 MG, AS NEEDED
     Route: 048
  2. DOXYCYCLINE [Concomitant]
     Indication: ACNE
     Dosage: 1000 MG, 2X/DAY
     Route: 048
  3. CLONAZEPAM [Concomitant]
     Indication: ANXIETY
     Dosage: 0.5 MG, AS NEEDED
     Route: 048
  4. LAMICTAL [Concomitant]
     Dosage: 25 MG, 2X/DAY
     Route: 048
  5. CLINDAMYCIN PHOSPHATE [Suspect]
     Indication: ACNE
     Dosage: UNK
     Route: 061
     Dates: start: 20110607

REACTIONS (1)
  - PRODUCT QUALITY ISSUE [None]
